FAERS Safety Report 22664637 (Version 4)
Quarter: 2024Q1

REPORT INFORMATION
  Report Type: Spontaneous
  Country: JP (occurrence: JP)
  Receive Date: 20230703
  Receipt Date: 20240119
  Transmission Date: 20240409
  Serious: Yes (Hospitalization)
  Sender: FDA-Public Use
  Company Number: JP-ONO-2022JP031966

PATIENT
  Age: 78 Year
  Sex: Female

DRUGS (3)
  1. OPDIVO [Suspect]
     Active Substance: NIVOLUMAB
     Indication: Gastric cancer
     Dosage: UNK
     Route: 041
  2. GIMERACIL\OTERACIL\TEGAFUR [Concomitant]
     Active Substance: GIMERACIL\OTERACIL POTASSIUM\TEGAFUR
     Indication: Gastric cancer
     Dosage: UNK
  3. OXALIPLATIN [Concomitant]
     Active Substance: OXALIPLATIN
     Indication: Gastric cancer
     Dosage: UNK

REACTIONS (3)
  - Secondary adrenocortical insufficiency [Recovering/Resolving]
  - Adrenocorticotropic hormone deficiency [Recovering/Resolving]
  - Urinary tract infection [Unknown]
